FAERS Safety Report 10202623 (Version 7)
Quarter: 2015Q4

REPORT INFORMATION
  Report Type: Spontaneous
  Country: US (occurrence: US)
  Receive Date: 20140528
  Receipt Date: 20151113
  Transmission Date: 20160304
  Serious: Yes (Hospitalization, Disabling, Other)
  Sender: FDA-Public Use
  Company Number: US-009507513-1405USA011593

PATIENT
  Sex: Female

DRUGS (6)
  1. FOSAMAX PLUS D [Suspect]
     Active Substance: ALENDRONATE SODIUM\CHOLECALCIFEROL
     Indication: OSTEOPOROSIS
     Dosage: 70 MG, QW
     Route: 048
     Dates: start: 20070131, end: 20081008
  2. VITAMINS (UNSPECIFIED) [Concomitant]
     Active Substance: VITAMINS
     Indication: PRODUCT USED FOR UNKNOWN INDICATION
     Dosage: 600 MG, BID
     Route: 048
     Dates: start: 1997
  3. FOSAMAX [Suspect]
     Active Substance: ALENDRONATE SODIUM
     Indication: OSTEOPOROSIS
     Dosage: 70 MG, QW
     Route: 048
     Dates: end: 20070131
  4. VITAMIN E [Concomitant]
     Active Substance: .ALPHA.-TOCOPHEROL
     Indication: PRODUCT USED FOR UNKNOWN INDICATION
     Dosage: 400 IU, UNK
     Route: 048
     Dates: start: 1997
  5. FOSAMAX [Suspect]
     Active Substance: ALENDRONATE SODIUM
     Dosage: UNK, UNK
     Route: 048
     Dates: start: 199509, end: 20070131
  6. CHOLECALCIFEROL [Concomitant]
     Active Substance: CHOLECALCIFEROL
     Indication: PRODUCT USED FOR UNKNOWN INDICATION
     Dosage: 1000 IU, UNK
     Route: 048
     Dates: start: 1997

REACTIONS (17)
  - Osteoporosis [Not Recovered/Not Resolved]
  - Fracture delayed union [Unknown]
  - Dyspepsia [Unknown]
  - Fall [Unknown]
  - Internal fixation of fracture [Unknown]
  - Pain in extremity [Recovering/Resolving]
  - Humerus fracture [Recovering/Resolving]
  - Radius fracture [Unknown]
  - Femur fracture [Unknown]
  - Metastasis [Unknown]
  - Femur fracture [Recovered/Resolved]
  - Femur fracture [Not Recovered/Not Resolved]
  - Humerus fracture [Unknown]
  - Tibia fracture [Unknown]
  - Hypertension [Unknown]
  - Nephrolithiasis [Unknown]
  - Leukocytosis [Unknown]

NARRATIVE: CASE EVENT DATE: 2007
